FAERS Safety Report 22707314 (Version 2)
Quarter: 2024Q3

REPORT INFORMATION
  Report Type: Spontaneous
  Country: IT (occurrence: IT)
  Receive Date: 20230714
  Receipt Date: 20240704
  Transmission Date: 20241016
  Serious: Yes (Other)
  Sender: RANBAXY
  Company Number: IT-SUN PHARMACEUTICAL INDUSTRIES LTD-2023R1-399129

PATIENT
  Age: 24 Year
  Sex: Male

DRUGS (1)
  1. FLECAINIDE [Suspect]
     Active Substance: FLECAINIDE
     Indication: Brugada syndrome
     Dosage: 2 MILLIGRAM/KILOGRAM  FOR 10 MINUTES
     Route: 065

REACTIONS (2)
  - Ventricular tachycardia [Unknown]
  - Toxicity to various agents [Unknown]
